FAERS Safety Report 4623960-2 (Version None)
Quarter: 2005Q1

REPORT INFORMATION
  Report Type: 
  Country: None (occurrence: None)
  Receive Date: 20050330
  Receipt Date: 20050330
  Transmission Date: 20050727
  Serious: Yes (Death)
  Sender: FDA-Public Use
  Company Number: None

PATIENT
  Age: 39 Year
  Sex: Male

DRUGS (5)
  1. NEURONTIN [Suspect]
     Indication: ANTISOCIAL BEHAVIOUR
     Dosage: 2400 MG DAILY, ORAL
     Route: 048
     Dates: start: 20010801, end: 20030801
  2. NEURONTIN [Suspect]
     Indication: DEPRESSION
     Dosage: 2400 MG DAILY, ORAL
     Route: 048
     Dates: start: 20010801, end: 20030801
  3. NEURONTIN [Suspect]
     Indication: MOOD SWINGS
     Dosage: 2400 MG DAILY, ORAL
     Route: 048
     Dates: start: 20010801, end: 20030801
  4. CLONAZEPAM [Concomitant]
  5. PAXIL [Concomitant]

REACTIONS (2)
  - COMPLETED SUICIDE [None]
  - INJURY ASPHYXIATION [None]
